FAERS Safety Report 15940249 (Version 1)
Quarter: 2019Q1

REPORT INFORMATION
  Report Type: Spontaneous
  Country: NL (occurrence: NL)
  Receive Date: 20190208
  Receipt Date: 20190208
  Transmission Date: 20190417
  Serious: Yes (Death, Other)
  Sender: FDA-Public Use
  Company Number: NL-MYLANLABS-2019M1011103

PATIENT
  Age: 8 Decade
  Sex: Male

DRUGS (3)
  1. EVEROLIMUS. [Suspect]
     Active Substance: EVEROLIMUS
     Indication: PANCREATIC NEUROENDOCRINE TUMOUR
     Route: 065
  2. CAPECITABINE. [Suspect]
     Active Substance: CAPECITABINE
     Indication: PANCREATIC NEUROENDOCRINE TUMOUR
     Dosage: ADMINISTERED ON 1-14 EVERY 4 WEEKS
     Route: 065
  3. TEMOZOLOMIDE. [Suspect]
     Active Substance: TEMOZOLOMIDE
     Indication: PANCREATIC NEUROENDOCRINE TUMOUR
     Dosage: ADMINISTERED ON 10-14 EVERY 4 WEEKS
     Route: 065

REACTIONS (7)
  - Neurological decompensation [Fatal]
  - Paradoxical drug reaction [Fatal]
  - Paraparesis [Unknown]
  - Anal incontinence [Unknown]
  - Metastases to meninges [Fatal]
  - Urinary incontinence [Unknown]
  - Cerebellar ataxia [Unknown]
